FAERS Safety Report 6347290-6 (Version None)
Quarter: 2009Q3

REPORT INFORMATION
  Report Type: 
  Country: None (occurrence: None)
  Receive Date: 20090908
  Receipt Date: 20090908
  Transmission Date: 20100115
  Serious: Yes (Other)
  Sender: FDA-Public Use
  Company Number: None

PATIENT
  Age: 15 Year
  Sex: Female
  Weight: 58 kg

DRUGS (1)
  1. TAMIFLU [Suspect]
     Indication: INFLUENZA
     Dosage: ONE PILL TWICE DAILY PO
     Route: 048
     Dates: start: 20090817, end: 20090822

REACTIONS (4)
  - CRYING [None]
  - DEPRESSION [None]
  - SUICIDAL IDEATION [None]
  - VOMITING [None]
